FAERS Safety Report 22848303 (Version 10)
Quarter: 2025Q2

REPORT INFORMATION
  Report Type: Report from Study
  Country: US (occurrence: US)
  Receive Date: 20230822
  Receipt Date: 20250508
  Transmission Date: 20250716
  Serious: Yes (Hospitalization, Other)
  Sender: UCB
  Company Number: US-UCBSA-2023025701

PATIENT
  Age: 25 Year
  Sex: Female
  Weight: 44.5 kg

DRUGS (35)
  1. FINTEPLA [Suspect]
     Active Substance: FENFLURAMINE
     Indication: Lennox-Gastaut syndrome
     Dosage: 4 MILLILITER, 2X/DAY (BID)
     Route: 048
     Dates: start: 20221108
  2. FINTEPLA [Suspect]
     Active Substance: FENFLURAMINE
     Indication: Severe myoclonic epilepsy of infancy
     Dosage: 2 MILLILITER, 2X/DAY (BID)
     Route: 048
  3. FINTEPLA [Suspect]
     Active Substance: FENFLURAMINE
     Dosage: 2 MILLILITER, 2X/DAY (BID)
     Route: 048
     Dates: start: 20221201
  4. FINTEPLA [Suspect]
     Active Substance: FENFLURAMINE
     Route: 048
     Dates: start: 20231031
  5. FINTEPLA [Suspect]
     Active Substance: FENFLURAMINE
     Dosage: 2 MILLILITER, 2X/DAY (BID)
  6. FINTEPLA [Suspect]
     Active Substance: FENFLURAMINE
  7. FINTEPLA [Suspect]
     Active Substance: FENFLURAMINE
  8. TYLENOL [Concomitant]
     Active Substance: ACETAMINOPHEN
     Indication: Pain
  9. ZYRTEC [Concomitant]
     Active Substance: CETIRIZINE HYDROCHLORIDE
     Indication: Product used for unknown indication
     Route: 048
  10. VITAMIN D3 [Concomitant]
     Active Substance: CHOLECALCIFEROL
     Indication: Product used for unknown indication
  11. CLEOCIN T [Concomitant]
     Active Substance: CLINDAMYCIN PHOSPHATE
     Indication: Product used for unknown indication
     Route: 061
  12. ONFI [Concomitant]
     Active Substance: CLOBAZAM
     Indication: Product used for unknown indication
     Dosage: 3.25 MILLILITER, 3X/DAY (TID) ML SUSPENSION, TAKE 3.25 MLS BY PER G TUBE ROUTE 3 (THREE)  TIMES DAIL
  13. BENADRYL [Concomitant]
     Active Substance: DIPHENHYDRAMINE HYDROCHLORIDE
     Indication: Product used for unknown indication
  14. EPIPEN [Concomitant]
     Active Substance: EPINEPHRINE
     Indication: Anaphylactic reaction
  15. HIZENTRA [Concomitant]
     Active Substance: HUMAN IMMUNOGLOBULIN G
     Indication: Product used for unknown indication
     Dosage: 1 GRAM, WEEKLY (QW)
     Route: 058
  16. HIZENTRA [Concomitant]
     Active Substance: HUMAN IMMUNOGLOBULIN G
     Dosage: 9 GRAM, WEEKLY (QW) INJECT TOTAL OF 45ML
     Route: 058
  17. HIZENTRA [Concomitant]
     Active Substance: HUMAN IMMUNOGLOBULIN G
  18. LACTASE [Concomitant]
     Active Substance: LACTASE
     Indication: Product used for unknown indication
  19. LACTOBACILLUS ACIDOPHILUS [Concomitant]
     Active Substance: LACTOBACILLUS ACIDOPHILUS
     Indication: Product used for unknown indication
     Route: 048
  20. LAMICTAL ODT [Concomitant]
     Active Substance: LAMOTRIGINE
     Indication: Product used for unknown indication
  21. EMLA [Concomitant]
     Active Substance: LIDOCAINE\PRILOCAINE
     Indication: Pain
     Route: 061
  22. ROSADAN [Concomitant]
     Active Substance: METRONIDAZOLE
     Indication: Product used for unknown indication
     Route: 061
  23. MINOCYCLINE [Concomitant]
     Active Substance: MINOCYCLINE HYDROCHLORIDE
     Indication: Product used for unknown indication
     Route: 048
  24. BACTROBAN [Concomitant]
     Active Substance: MUPIROCIN CALCIUM
     Indication: Product used for unknown indication
     Route: 048
  25. OMEPRAZOLE [Concomitant]
     Active Substance: OMEPRAZOLE
     Indication: Product used for unknown indication
     Route: 048
  26. MIRALAX [Concomitant]
     Active Substance: POLYETHYLENE GLYCOL 3350
     Indication: Product used for unknown indication
     Route: 048
  27. CYTRA-K [Concomitant]
     Active Substance: CITRIC ACID MONOHYDRATE\POTASSIUM CITRATE
     Indication: Product used for unknown indication
     Dosage: 7.5 MILLILITER, 3X/DAY (TID), TAKE 7.5 MLS BY  MOUTH 3 (THREE) TIMES DAILY WITH MEALS
     Route: 048
  28. TOPAMAX [Concomitant]
     Active Substance: TOPIRAMATE
     Indication: Product used for unknown indication
  29. VALTOCO [Concomitant]
     Active Substance: DIAZEPAM
     Indication: Seizure
     Route: 045
  30. DEXTRIN\WHEAT [Concomitant]
     Active Substance: ICODEXTRIN\WHEAT
     Indication: Product used for unknown indication
  31. RETINO A [Concomitant]
     Indication: Product used for unknown indication
     Route: 061
  32. CALCIUM [Concomitant]
     Active Substance: CALCIUM
     Indication: Product used for unknown indication
  33. POTASSIUM [Concomitant]
     Active Substance: POTASSIUM
     Indication: Product used for unknown indication
  34. CITRATE [Concomitant]
     Active Substance: CITRIC ACID MONOHYDRATE
     Indication: Product used for unknown indication
  35. ASPIRIN [Concomitant]
     Active Substance: ASPIRIN
     Indication: Product used for unknown indication

REACTIONS (12)
  - Atrial septal defect repair [Recovered/Resolved]
  - Annuloplasty [Unknown]
  - Right atrial dilatation [Not Recovered/Not Resolved]
  - Right ventricular dilatation [Not Recovered/Not Resolved]
  - Pulmonary valve incompetence [Unknown]
  - Tricuspid valve incompetence [Unknown]
  - Mitral valve incompetence [Unknown]
  - Right ventricular systolic pressure increased [Unknown]
  - Ventricular hypokinesia [Unknown]
  - Right ventricular dysfunction [Unknown]
  - Atrial septal defect [Not Recovered/Not Resolved]
  - Pulmonary arterial pressure increased [Not Recovered/Not Resolved]

NARRATIVE: CASE EVENT DATE: 20230511
